FAERS Safety Report 4867053-8 (Version None)
Quarter: 2005Q4

REPORT INFORMATION
  Report Type: 
  Country: None (occurrence: None)
  Receive Date: 20051222
  Receipt Date: 20051215
  Transmission Date: 20060501
  Serious: Yes (Life-Threatening)
  Sender: FDA-Public Use
  Company Number: TCI2005A05108

PATIENT
  Age: 65 Year
  Sex: Male

DRUGS (2)
  1. ACTOS [Suspect]
     Indication: DIABETES MELLITUS
     Dosage: 15 MG (15 MG, 1 D) PER ORAL
     Route: 048
     Dates: start: 20051130, end: 20051210
  2. AMARYL [Concomitant]

REACTIONS (7)
  - ANGINA PECTORIS [None]
  - BLOOD CULTURE POSITIVE [None]
  - DISSEMINATED INTRAVASCULAR COAGULATION [None]
  - LUNG NEOPLASM MALIGNANT [None]
  - PLATELET COUNT DECREASED [None]
  - PSEUDOMONAS INFECTION [None]
  - WHITE BLOOD CELL COUNT DECREASED [None]
